FAERS Safety Report 9637729 (Version 2)
Quarter: 2014Q1

REPORT INFORMATION
  Report Type: Other
  Country: JP (occurrence: JP)
  Receive Date: 20131022
  Receipt Date: 20140131
  Transmission Date: 20141002
  Serious: Yes (Death, Hospitalization)
  Sender: FDA-Public Use
  Company Number: JP-NAPPMUNDI-GBR-2013-0016139

PATIENT
  Age: 73 Year
  Sex: Male

DRUGS (2)
  1. OXYCODONE HYDROCHLORIDE [Suspect]
     Indication: PAIN
     Dosage: 100 MG, DAILY
     Dates: start: 20120802, end: 20130906
  2. OXYCODONE HYDROCHLORIDE [Suspect]
     Dosage: 40 MG, DAILY
     Dates: start: 20120608, end: 20120906

REACTIONS (2)
  - General physical health deterioration [Fatal]
  - Ileus paralytic [Recovering/Resolving]
